FAERS Safety Report 8310206-7 (Version None)
Quarter: 2012Q2

REPORT INFORMATION
  Report Type: 
  Country: None (occurrence: None)
  Receive Date: 20120425
  Receipt Date: 20120417
  Transmission Date: 20120825
  Serious: Yes (Other)
  Sender: FDA-Public Use
  Company Number: US-BAYER-2011-069305

PATIENT
  Age: 30 Year
  Sex: Female
  Weight: 113.38 kg

DRUGS (3)
  1. YASMIN [Suspect]
     Indication: PREMENSTRUAL SYNDROME
     Dosage: UNK
     Dates: start: 20020401, end: 20040801
  2. OXYCODONE HCL AND ACETAMINOPHEN [Concomitant]
     Dosage: UNK
     Dates: start: 20040325
  3. SPIRONOLACTONE [Concomitant]
     Dosage: UNK
     Dates: start: 20040510

REACTIONS (5)
  - MENTAL DISORDER [None]
  - CHOLECYSTITIS CHRONIC [None]
  - INJURY [None]
  - GALLBLADDER DISORDER [None]
  - PAIN [None]
